FAERS Safety Report 18405586 (Version 3)
Quarter: 2020Q4

REPORT INFORMATION
  Report Type: Spontaneous
  Country: US (occurrence: US)
  Receive Date: 20201020
  Receipt Date: 20201028
  Transmission Date: 20210114
  Serious: Yes (Other)
  Sender: FDA-Public Use
  Company Number: US-PFIZER INC-2020404367

PATIENT
  Age: 60 Year
  Sex: Male
  Weight: 71.4 kg

DRUGS (2)
  1. AMIODARONE HCL [Suspect]
     Active Substance: AMIODARONE HYDROCHLORIDE
     Dosage: 400 MG, 1X/DAY
     Route: 048
     Dates: start: 20200929
  2. AMIODARONE HCL [Suspect]
     Active Substance: AMIODARONE HYDROCHLORIDE
     Indication: VENTRICULAR TACHYCARDIA
     Dosage: 400 MG, 2X/DAY
     Route: 048
     Dates: end: 20200928

REACTIONS (2)
  - Drug hypersensitivity [Unknown]
  - Hypothyroidism [Unknown]
